FAERS Safety Report 9552347 (Version 4)
Quarter: 2013Q4

REPORT INFORMATION
  Report Type: Spontaneous
  Country: JP (occurrence: JP)
  Receive Date: 20130925
  Receipt Date: 20131220
  Transmission Date: 20140711
  Serious: Yes (Hospitalization, Other)
  Sender: FDA-Public Use
  Company Number: JP-UCBSA-045191

PATIENT
  Age: 10 Year
  Sex: Female
  Weight: 17.7 kg

DRUGS (11)
  1. E KEPPRA [Suspect]
     Indication: MYOCLONIC EPILEPSY
     Dosage: DOSE: 14.1 MG/KG/DAY
     Route: 048
     Dates: start: 20111027
  2. E KEPPRA [Suspect]
     Indication: EPILEPSY
     Dosage: DOSE: 14.1 MG/KG/DAY
     Route: 048
     Dates: start: 20111027
  3. RIVOTRIL [Concomitant]
     Indication: MYOCLONIC EPILEPSY
     Dosage: 0.2 MG
     Route: 048
     Dates: start: 200506
  4. LAMICTAL [Concomitant]
     Indication: MYOCLONIC EPILEPSY
     Dosage: DAILY DOSE: 50 MG
     Route: 048
     Dates: start: 201010
  5. MUCODYNE DS [Concomitant]
     Indication: CHRONIC RESPIRATORY FAILURE
     Dosage: DAILY DOSE: 300 MG
     Route: 048
  6. ERYTHROCIN [Concomitant]
     Indication: CHRONIC RESPIRATORY FAILURE
     Dosage: DAILY DOSE: 170 MG
     Route: 048
  7. TOPIRAMATE [Concomitant]
     Indication: TONIC CONVULSION
     Dosage: DAILY DOSE 60 MG
  8. TOPIRAMATE [Concomitant]
     Indication: MYOCLONIC EPILEPSY
     Dosage: DAILY DOSE 60 MG
  9. TOPIRAMATE [Concomitant]
     Indication: TONIC CONVULSION
     Dosage: TAPERED DOSE
  10. TOPIRAMATE [Concomitant]
     Indication: MYOCLONIC EPILEPSY
     Dosage: TAPERED DOSE
  11. VALPROATE SODIUM [Concomitant]

REACTIONS (8)
  - Hyporesponsive to stimuli [Recovered/Resolved]
  - Depression [Unknown]
  - Hypokinesia [Recovered/Resolved]
  - Hypopnoea [Unknown]
  - Pallor [Unknown]
  - Cold sweat [Unknown]
  - Psychotic disorder [Recovered/Resolved]
  - Decreased activity [Recovered/Resolved]
